FAERS Safety Report 22828363 (Version 2)
Quarter: 2023Q4

REPORT INFORMATION
  Report Type: Report from Study
  Country: TH (occurrence: TH)
  Receive Date: 20230816
  Receipt Date: 20231012
  Transmission Date: 20240109
  Serious: Yes (Death)
  Sender: FDA-Public Use
  Company Number: TH-002147023-NVSC2020TH251566

PATIENT
  Sex: Female

DRUGS (4)
  1. KISQALI [Suspect]
     Active Substance: RIBOCICLIB
     Indication: Breast cancer metastatic
     Dosage: 2 DOSAGE FORM, QD (200 MG)
     Route: 048
  2. FASLODEX [Concomitant]
     Active Substance: FULVESTRANT
     Indication: Product used for unknown indication
     Dosage: 250 MG (IM HIPS EACH SIDE 250 MG)
     Route: 030
  3. FERROUS FUMARATE [Concomitant]
     Active Substance: FERROUS FUMARATE
     Indication: Product used for unknown indication
     Dosage: 1 DOSAGE FORM, BID (200 MG)
     Route: 065
  4. FOLIC ACID [Concomitant]
     Active Substance: FOLIC ACID
     Indication: Product used for unknown indication
     Dosage: 1 DOSAGE FORM, QD (5 MG)
     Route: 048

REACTIONS (8)
  - Breast cancer [Fatal]
  - Weight decreased [Unknown]
  - Waist circumference increased [Unknown]
  - Cough [Unknown]
  - Decreased appetite [Unknown]
  - Productive cough [Unknown]
  - Fatigue [Unknown]
  - White blood cell count decreased [Unknown]
